FAERS Safety Report 6443459-0 (Version None)
Quarter: 2009Q4

REPORT INFORMATION
  Report Type: 
  Country: None (occurrence: None)
  Receive Date: 20091117
  Receipt Date: 20091105
  Transmission Date: 20100525
  Serious: Yes (Hospitalization, Other)
  Sender: FDA-Public Use
  Company Number: TW-PFIZER INC-2009270108

PATIENT
  Age: 68 Year
  Sex: Male

DRUGS (5)
  1. SUNITINIB MALATE [Suspect]
     Indication: HEPATIC NEOPLASM MALIGNANT NON-RESECTABLE
     Dosage: 37.5 MG, 1X/DAY
     Route: 048
     Dates: start: 20090716
  2. CIPROXIN [Concomitant]
     Indication: PROPHYLAXIS
     Dosage: 500 MG, EVERY 12H
     Dates: start: 20090901
  3. MUCAINE [Concomitant]
     Indication: GASTRITIS
     Dosage: 3X/DAY
     Dates: start: 20090709
  4. LOPERAMIDE HYDROCHLORIDE [Concomitant]
     Indication: DIARRHOEA
     Dosage: 2 MG, 3X/DAY
     Dates: start: 20090827
  5. PANADOL [Concomitant]
     Indication: PALMAR-PLANTAR ERYTHRODYSAESTHESIA SYNDROME
     Dosage: 500 MG, 3X/DAY
     Dates: start: 20090910

REACTIONS (3)
  - NEUTROPENIA [None]
  - SEPSIS [None]
  - THROMBOCYTOPENIA [None]
